FAERS Safety Report 21860237 (Version 1)
Quarter: 2023Q1

REPORT INFORMATION
  Report Type: Spontaneous
  Country: US (occurrence: None)
  Receive Date: 20230113
  Receipt Date: 20230113
  Transmission Date: 20230418
  Serious: Yes (Death, Hospitalization)
  Sender: FDA-Public Use
  Company Number: None

PATIENT
  Sex: Male
  Weight: 83.2 kg

DRUGS (4)
  1. DARATUMUMAB\HYALURONIDASE-FIHJ [Suspect]
     Active Substance: DARATUMUMAB\HYALURONIDASE-FIHJ
     Dates: end: 20220831
  2. DEXAMETHASONE [Suspect]
     Active Substance: DEXAMETHASONE
     Dates: end: 20220907
  3. LENALIDOMIDE [Suspect]
     Active Substance: LENALIDOMIDE
     Dates: end: 20220908
  4. VELCADE [Suspect]
     Active Substance: BORTEZOMIB
     Dates: end: 20220907

REACTIONS (19)
  - Loss of consciousness [None]
  - Atrial fibrillation [None]
  - Ventricular tachycardia [None]
  - Ventricular fibrillation [None]
  - Rib fracture [None]
  - Bladder hypertrophy [None]
  - Pulmonary embolism [None]
  - Hypotension [None]
  - Heart rate increased [None]
  - Urine analysis abnormal [None]
  - Multiple organ dysfunction syndrome [None]
  - Therapy non-responder [None]
  - Staphylococcal infection [None]
  - Blood culture positive [None]
  - Culture urine positive [None]
  - Arrhythmia [None]
  - Neutropenia [None]
  - Multiple organ dysfunction syndrome [None]
  - Nervous system disorder [None]

NARRATIVE: CASE EVENT DATE: 20220913
